FAERS Safety Report 12656188 (Version 1)
Quarter: 2016Q3

REPORT INFORMATION
  Report Type: Spontaneous
  Country: US (occurrence: US)
  Receive Date: 20160816
  Receipt Date: 20160816
  Transmission Date: 20161109
  Serious: No
  Sender: FDA-Public Use
  Company Number: US-GALDERMA-US15006379

PATIENT
  Sex: Female

DRUGS (4)
  1. XYZAL (LEVOCETIRIZINE) [Concomitant]
     Route: 048
  2. MAKE UP UNSPECIFIED [Concomitant]
     Route: 061
  3. METRONIDAZOLE GEL, 1% [Suspect]
     Active Substance: METRONIDAZOLE
     Indication: ROSACEA
     Dosage: 1%
     Route: 061
  4. PREMARIN (CONJUGATED ESTROGENS TABLETS, USP) [Concomitant]
     Route: 048

REACTIONS (2)
  - Inappropriate schedule of drug administration [Recovered/Resolved]
  - Drug ineffective [Recovered/Resolved]
